FAERS Safety Report 8166947-8 (Version None)
Quarter: 2012Q1

REPORT INFORMATION
  Report Type: 
  Country: None (occurrence: None)
  Receive Date: 20120227
  Receipt Date: 20120217
  Transmission Date: 20120608
  Serious: Yes (Hospitalization)
  Sender: FDA-Public Use
  Company Number: US-ASTELLAS-2011US001139

PATIENT

DRUGS (9)
  1. TACERON [Concomitant]
     Indication: ARRHYTHMIA
     Dosage: UNK
     Route: 065
     Dates: start: 20100301
  2. PROGRAF [Suspect]
     Indication: LIVER TRANSPLANT
     Dosage: 0.5 MG, BID
     Route: 048
     Dates: start: 20000914
  3. RENVELA [Concomitant]
     Indication: RENAL DISORDER
     Dosage: UNK
     Route: 065
     Dates: start: 20100901
  4. DIGOXIN [Concomitant]
     Indication: CARDIAC DISORDER
     Dosage: UNK
     Route: 065
     Dates: start: 20100301
  5. ZETIA [Concomitant]
     Indication: BLOOD CHOLESTEROL
     Dosage: UNK
     Route: 065
     Dates: start: 20100901
  6. LEVOTHYROXINE SODIUM [Concomitant]
     Indication: THYROID DISORDER
     Dosage: UNK
     Route: 065
     Dates: start: 20100301
  7. VITAMINS NOS [Concomitant]
     Indication: VITAMIN SUPPLEMENTATION
     Dosage: 1 DF, UID/QD
     Route: 048
     Dates: start: 20100301
  8. OMEPRAZOLE [Concomitant]
     Indication: GASTROOESOPHAGEAL REFLUX DISEASE
     Dosage: UNK
     Route: 065
     Dates: start: 20101201
  9. NOVOLOG [Concomitant]
     Indication: DIABETES MELLITUS
     Dosage: 100 U IN AM, 140 U IN PM
     Route: 065
     Dates: start: 20100301

REACTIONS (4)
  - COLONIC POLYP [None]
  - DIZZINESS [None]
  - GASTRIC POLYPS [None]
  - HAEMATOCHEZIA [None]
